FAERS Safety Report 15822094 (Version 1)
Quarter: 2019Q1

REPORT INFORMATION
  Report Type: Spontaneous
  Country: DE (occurrence: DE)
  Receive Date: 20190114
  Receipt Date: 20190114
  Transmission Date: 20190417
  Serious: Yes (Life-Threatening)
  Sender: FDA-Public Use
  Company Number: DE-TEVA-2019-DE-997673

PATIENT
  Age: 60 Year
  Sex: Male
  Weight: 76.4 kg

DRUGS (3)
  1. METOCLOPRAMIDE. [Suspect]
     Active Substance: METOCLOPRAMIDE
     Indication: PRODUCT USED FOR UNKNOWN INDICATION
     Route: 065
  2. BELOC MITE [Concomitant]
     Indication: HYPERTENSION
     Route: 048
  3. ROFERON-A [Suspect]
     Active Substance: INTERFERON ALFA-2A
     Indication: MALIGNANT MELANOMA IN SITU
     Route: 058
     Dates: start: 20010921, end: 20011029

REACTIONS (1)
  - Thrombocytopenia [Recovered/Resolved]

NARRATIVE: CASE EVENT DATE: 20011029
